FAERS Safety Report 22362463 (Version 1)
Quarter: 2023Q2

REPORT INFORMATION
  Report Type: Spontaneous
  Country: HU (occurrence: HU)
  Receive Date: 20230524
  Receipt Date: 20230524
  Transmission Date: 20230721
  Serious: Yes (Life-Threatening)
  Sender: FDA-Public Use
  Company Number: None

PATIENT
  Age: 33 Year
  Sex: Female

DRUGS (4)
  1. PROPOFOL [Suspect]
     Active Substance: PROPOFOL
     Indication: Induction of anaesthesia
     Route: 042
     Dates: start: 20230424, end: 20230424
  2. SEVOFLURANE [Concomitant]
     Active Substance: SEVOFLURANE
     Indication: Anaesthesia procedure
     Route: 055
     Dates: start: 20230424, end: 20230424
  3. SUFENTANIL TORREX [Concomitant]
     Indication: Analgesic therapy
     Route: 042
     Dates: start: 20230424, end: 20230424
  4. ROCURONIUM HAMELN [Concomitant]
     Indication: Anaesthesia procedure
     Route: 042
     Dates: start: 20230424, end: 20230424

REACTIONS (3)
  - Tachycardia [Recovered/Resolved]
  - Anaphylactic shock [Recovered/Resolved]
  - Hypotension [Recovering/Resolving]

NARRATIVE: CASE EVENT DATE: 20230424
